FAERS Safety Report 8766852 (Version 4)
Quarter: 2013Q3

REPORT INFORMATION
  Report Type: Report from Study
  Country: JP (occurrence: JP)
  Receive Date: 20120904
  Receipt Date: 20130722
  Transmission Date: 20140515
  Serious: Yes (Other)
  Sender: FDA-Public Use
  Company Number: PHHY2012JP076505

PATIENT
  Age: 39 Year
  Sex: Male

DRUGS (25)
  1. CERTICAN [Suspect]
     Indication: HEART TRANSPLANT
     Dosage: 1.0 MG DAILY
     Route: 048
     Dates: start: 20110623
  2. NEORAL [Concomitant]
     Indication: HEART TRANSPLANT
     Dosage: 240 MG, UNK
     Route: 048
     Dates: start: 20110629
  3. NEORAL [Concomitant]
     Dosage: 200 MG, UNK
     Route: 048
  4. NEORAL [Concomitant]
     Dosage: 220 MG, UNK
     Route: 048
  5. NEORAL [Concomitant]
     Dosage: 150 MG, UNK
     Route: 048
     Dates: start: 20111208
  6. NEORAL [Concomitant]
     Dosage: 135 MG, UNK
     Route: 048
  7. PREDNISOLONE [Concomitant]
     Indication: HEART TRANSPLANT
     Dosage: 10 MG, UNK
     Route: 048
     Dates: start: 20110622
  8. PREDNISOLONE [Concomitant]
     Dosage: 7 MG, UNK
     Route: 048
  9. PREDNISOLONE [Concomitant]
     Dosage: 6 MG, UNK
     Route: 048
  10. PREDNISOLONE [Concomitant]
     Dosage: 5 MG, UNK
     Route: 048
     Dates: start: 20111209
  11. PREDNISOLONE [Concomitant]
     Dosage: 4 MG, UNK
     Route: 048
  12. PREDNISOLONE [Concomitant]
     Dosage: 3 MG, UNK
     Route: 048
  13. CELLCEPT [Concomitant]
     Indication: HEART TRANSPLANT
     Dosage: 2000 MG, UNK
     Route: 048
     Dates: start: 20110623, end: 20110623
  14. BAKTAR [Concomitant]
     Dosage: 1 DF, UNK
     Route: 048
     Dates: start: 20110929, end: 20111208
  15. MAINTATE [Concomitant]
     Indication: HYPERLIPIDAEMIA
     Dosage: 2.5 MG, UNK
     Route: 048
     Dates: start: 20111208
  16. RENIVACE [Concomitant]
     Indication: HYPERTENSION
     Dosage: 10 MG, UNK
     Route: 048
     Dates: start: 20111028
  17. RENIVACE [Concomitant]
     Dosage: 5 MG, UNK
     Route: 048
  18. LIPITOR [Concomitant]
     Indication: HYPERLIPIDAEMIA
     Dosage: 10 MG, UNK
     Route: 048
     Dates: start: 20111028
  19. MEVALOTIN [Concomitant]
     Indication: HYPERLIPIDAEMIA
     Dosage: 10 MG, UNK
     Route: 048
     Dates: start: 20110929, end: 20111027
  20. TAKEPRON [Concomitant]
     Indication: PROPHYLAXIS
     Dosage: 15 MG, UNK
     Route: 048
     Dates: start: 20111208
  21. ZOVIRAX [Concomitant]
     Indication: PROPHYLAXIS
     Dosage: 600 MG, UNK
     Route: 048
     Dates: start: 20110929
  22. ZOVIRAX [Concomitant]
     Dosage: 400 MG, UNK
     Route: 048
  23. ZOVIRAX [Concomitant]
     Dosage: 200 MG, UNK
     Route: 048
     Dates: end: 20120222
  24. EXCEGRAN [Concomitant]
     Indication: PROPHYLAXIS
     Dosage: 200 MG, UNK
     Route: 048
     Dates: start: 20111208
  25. HERBESSER R [Concomitant]
     Indication: PROPHYLAXIS
     Dosage: 100 MG, UNK
     Route: 048
     Dates: start: 20120726

REACTIONS (2)
  - Fall [Recovered/Resolved]
  - Lumbar vertebral fracture [Recovering/Resolving]
